FAERS Safety Report 5413013-8 (Version None)
Quarter: 2007Q3

REPORT INFORMATION
  Report Type: 
  Country: None (occurrence: None)
  Receive Date: 20070813
  Receipt Date: 20070801
  Transmission Date: 20080115
  Serious: Yes (Other)
  Sender: FDA-Public Use
  Company Number: FR-PFIZER INC-2007050677

PATIENT
  Sex: Female
  Weight: 56 kg

DRUGS (1)
  1. VORICONAZOLE [Suspect]
     Indication: ASPERGILLOSIS
     Route: 048

REACTIONS (5)
  - AGEUSIA [None]
  - HALLUCINATION [None]
  - PARAESTHESIA [None]
  - UNEVALUABLE EVENT [None]
  - VISUAL DISTURBANCE [None]
